FAERS Safety Report 15598605 (Version 3)
Quarter: 2025Q3

REPORT INFORMATION
  Report Type: Report from Study
  Country: US (occurrence: US)
  Receive Date: 20181108
  Receipt Date: 20250816
  Transmission Date: 20251020
  Serious: No
  Sender: ALEXION PHARMACEUTICALS
  Company Number: US-ALEXION PHARMACEUTICALS INC.-A201814565

PATIENT
  Sex: Male

DRUGS (1)
  1. STRENSIQ [Suspect]
     Active Substance: ASFOTASE ALFA
     Indication: Hypophosphatasia
     Dosage: UNK, SIX TIMES/WEEK
     Dates: start: 2016

REACTIONS (5)
  - Injection site reaction [Unknown]
  - Injection site atrophy [Not Recovered/Not Resolved]
  - Injection site discolouration [Unknown]
  - Injection site induration [Unknown]
  - Injection site mass [Unknown]

NARRATIVE: CASE EVENT DATE: 20180101
